FAERS Safety Report 18521446 (Version 1)
Quarter: 2020Q4

REPORT INFORMATION
  Report Type: Spontaneous
  Country: FR (occurrence: FR)
  Receive Date: 20201119
  Receipt Date: 20201119
  Transmission Date: 20210114
  Serious: Yes (Hospitalization)
  Sender: FDA-Public Use
  Company Number: FR-TEVA-2020-FR-1849607

PATIENT
  Age: 50 Year
  Sex: Female

DRUGS (3)
  1. AZITHROMYCINE [Suspect]
     Active Substance: AZITHROMYCIN
     Indication: RESPIRATORY TRACT INFECTION
     Dosage: 3 GRAM
     Route: 048
     Dates: start: 20201020, end: 20201023
  2. PHOLCODINE [Suspect]
     Active Substance: PHOLCODINE
     Indication: RESPIRATORY TRACT INFECTION
     Route: 048
     Dates: start: 20201020, end: 20201023
  3. OXYMETAZOLINE (CHLORHYDRATE D^) [Suspect]
     Active Substance: OXYMETAZOLINE HYDROCHLORIDE
     Indication: RESPIRATORY TRACT INFECTION
     Route: 045
     Dates: start: 20201020, end: 20201023

REACTIONS (2)
  - Rash maculo-papular [Recovering/Resolving]
  - Pruritus [Recovering/Resolving]

NARRATIVE: CASE EVENT DATE: 20201021
